FAERS Safety Report 18067097 (Version 1)
Quarter: 2020Q3

REPORT INFORMATION
  Report Type: Spontaneous
  Country: JP (occurrence: JP)
  Receive Date: 20200724
  Receipt Date: 20200724
  Transmission Date: 20201103
  Serious: Yes (Hospitalization)
  Sender: FDA-Public Use
  Company Number: JP-MEDEXUS PHARMA, INC.-2020MED00213

PATIENT
  Age: 71 Year
  Sex: Female

DRUGS (3)
  1. PREDNISOLONE. [Concomitant]
     Active Substance: PREDNISOLONE
     Dosage: 0.5 MG, 1X/DAY
  2. METHOTREXATE. [Suspect]
     Active Substance: METHOTREXATE
     Indication: RHEUMATOID ARTHRITIS
     Dosage: 8 MG, 1X/WEEK
     Route: 065
     Dates: start: 1993, end: 201709
  3. TACROLIMUS. [Suspect]
     Active Substance: TACROLIMUS
     Indication: RHEUMATOID ARTHRITIS
     Dosage: 1 MG, 1X/DAY
     Route: 065
     Dates: start: 1993, end: 201709

REACTIONS (5)
  - Diffuse large B-cell lymphoma [Recovered/Resolved]
  - Gastric perforation [Recovered/Resolved]
  - Peritonitis [Recovered/Resolved]
  - Gastric stenosis [Recovered/Resolved]
  - Gastric ulcer [Recovered/Resolved]

NARRATIVE: CASE EVENT DATE: 201709
